FAERS Safety Report 16971086 (Version 1)
Quarter: 2019Q4

REPORT INFORMATION
  Report Type: Spontaneous
  Country: US (occurrence: US)
  Receive Date: 20191029
  Receipt Date: 20191029
  Transmission Date: 20200122
  Serious: No
  Sender: FDA-Public Use
  Company Number: US-ELI_LILLY_AND_COMPANY-US201910007299

PATIENT
  Sex: Female

DRUGS (1)
  1. EMGALITY [Suspect]
     Active Substance: GALCANEZUMAB-GNLM
     Indication: PRODUCT USED FOR UNKNOWN INDICATION
     Dosage: 1 DOSAGE FORM, UNKNOWN
     Route: 065
     Dates: start: 20190718, end: 20190818

REACTIONS (14)
  - Visual impairment [Unknown]
  - Palpitations [Unknown]
  - Insomnia [Unknown]
  - Back pain [Unknown]
  - Photophobia [Unknown]
  - Dyspnoea [Unknown]
  - Blepharospasm [Unknown]
  - Headache [Unknown]
  - Hyperacusis [Unknown]
  - Parosmia [Unknown]
  - Constipation [Unknown]
  - Nausea [Unknown]
  - Abdominal pain upper [Unknown]
  - Anxiety [Unknown]
